FAERS Safety Report 13923251 (Version 5)
Quarter: 2017Q4

REPORT INFORMATION
  Report Type: Report from Study
  Country: None (occurrence: CO)
  Receive Date: 20170831
  Receipt Date: 20171214
  Transmission Date: 20180320
  Serious: Yes (Other)
  Sender: FDA-Public Use
  Company Number: CO-ABBVIE-17K-036-2086273-00

PATIENT
  Age: 56 Year
  Sex: Female
  Weight: 53 kg

DRUGS (1)
  1. HUMIRA [Suspect]
     Active Substance: ADALIMUMAB
     Indication: PSORIASIS
     Route: 058
     Dates: start: 20100611, end: 20170722

REACTIONS (10)
  - Eyelid ptosis [Unknown]
  - Skin haemorrhage [Unknown]
  - Vision blurred [Unknown]
  - Dry eye [Unknown]
  - Pain of skin [Unknown]
  - Granuloma [Unknown]
  - Visual acuity reduced [Unknown]
  - Vision blurred [Recovered/Resolved]
  - Psoriasis [Unknown]
  - Drug ineffective [Unknown]

NARRATIVE: CASE EVENT DATE: 201707
